FAERS Safety Report 4457063-7 (Version None)
Quarter: 2004Q3

REPORT INFORMATION
  Report Type: 
  Country: None (occurrence: None)
  Receive Date: 20040830
  Receipt Date: 20040408
  Transmission Date: 20050211
  Serious: No
  Sender: FDA-Public Use
  Company Number: 205835

PATIENT
  Age: 50 Year
  Sex: Female

DRUGS (8)
  1. XOLAIR [Suspect]
     Indication: ASTHMA
     Dosage: 300 MG, SINGLE, SUBCUTANEOUS
     Route: 058
     Dates: start: 20040407
  2. NASONEX [Concomitant]
  3. SINGULAIR [Concomitant]
  4. ALLEGRA [Concomitant]
  5. FORADIL [Concomitant]
  6. THERAFLU FLU AND COLD (PSEUDOEPHEDRINE HYDROCHLORIDE, ACETAMINOPHEN, C [Concomitant]
  7. CALCIUM GLUCONATE [Concomitant]
  8. MULTIVITAMIN (UNK INGREDIENTS) (MULTIVITAMINS NOS) [Concomitant]

REACTIONS (1)
  - HOT FLUSH [None]
